FAERS Safety Report 18978670 (Version 2)
Quarter: 2022Q1

REPORT INFORMATION
  Report Type: Spontaneous
  Country: US (occurrence: US)
  Receive Date: 20210308
  Receipt Date: 20220110
  Transmission Date: 20220423
  Serious: No
  Sender: FDA-Public Use
  Company Number: US-SA-SAC20210305000012

PATIENT
  Sex: Male
  Weight: 79.819 kg

DRUGS (8)
  1. ALDURAZYME [Suspect]
     Active Substance: LARONIDASE
     Indication: Mucopolysaccharidosis
     Dosage: 46.4 MG, QW
     Route: 041
     Dates: start: 20200220
  2. ACETAMINOPHEN [Concomitant]
     Active Substance: ACETAMINOPHEN
  3. HEPARIN [Concomitant]
     Active Substance: HEPARIN SODIUM
  4. LORATADINE [Concomitant]
     Active Substance: LORATADINE
  5. SODIUM CHLORIDE [Concomitant]
     Active Substance: SODIUM CHLORIDE
  6. EPINEPHRINE [Concomitant]
     Active Substance: EPINEPHRINE
  7. LMX4 [Concomitant]
     Active Substance: LIDOCAINE
  8. ENALAPRIL [Concomitant]
     Active Substance: ENALAPRIL

REACTIONS (3)
  - Device malfunction [Unknown]
  - Abdominal pain [Unknown]
  - Vomiting [Unknown]
